FAERS Safety Report 9965843 (Version 1)
Quarter: 2014Q1

REPORT INFORMATION
  Report Type: Report from Study
  Country: US (occurrence: US)
  Receive Date: 20140305
  Receipt Date: 20140305
  Transmission Date: 20141002
  Serious: No
  Sender: FDA-Public Use
  Company Number: US-ABBVIE-13P-163-1127273-00

PATIENT
  Age: 33 Year
  Sex: Male

DRUGS (8)
  1. HUMIRA [Suspect]
     Indication: CROHN^S DISEASE
     Dates: start: 20130710, end: 20130710
  2. HUMIRA [Suspect]
     Dates: start: 20130724, end: 20130724
  3. HUMIRA [Suspect]
  4. ENTOCORT [Concomitant]
     Indication: CROHN^S DISEASE
  5. PREDNISONE [Concomitant]
     Indication: CROHN^S DISEASE
  6. LISINOPRIL [Concomitant]
     Indication: BLOOD PRESSURE
  7. ESCITALOPRAM [Concomitant]
     Indication: ANXIETY
  8. XANAX [Concomitant]
     Indication: PANIC ATTACK

REACTIONS (5)
  - Local swelling [Not Recovered/Not Resolved]
  - Emotional distress [Not Recovered/Not Resolved]
  - Injection site pustule [Not Recovered/Not Resolved]
  - Medial tibial stress syndrome [Not Recovered/Not Resolved]
  - Injection site pain [Not Recovered/Not Resolved]
